FAERS Safety Report 5316272-5 (Version None)
Quarter: 2007Q2

REPORT INFORMATION
  Report Type: 
  Country: None (occurrence: None)
  Receive Date: 20070430
  Receipt Date: 20070423
  Transmission Date: 20071010
  Serious: Yes (Death, Hospitalization)
  Sender: FDA-Public Use
  Company Number: 163-21880-06090430

PATIENT
  Age: 84 Year
  Sex: Male

DRUGS (8)
  1. REVLIMID [Suspect]
     Indication: CHRONIC MYELOMONOCYTIC LEUKAEMIA
     Dosage: 10 MG, 1 IN 1 D, ORAL
     Route: 048
     Dates: start: 20060909, end: 20060915
  2. REVLIMID [Suspect]
     Indication: CYTOGENETIC ANALYSIS ABNORMAL
     Dosage: 10 MG, 1 IN 1 D, ORAL
     Route: 048
     Dates: start: 20060909, end: 20060915
  3. REVLIMID [Suspect]
     Indication: MYELODYSPLASTIC SYNDROME
     Dosage: 10 MG, 1 IN 1 D, ORAL
     Route: 048
     Dates: start: 20060909, end: 20060915
  4. QUININE SULFATE [Concomitant]
  5. DYAZIDE [Concomitant]
  6. NEURONTIN [Concomitant]
  7. ALLOPURINOL [Concomitant]
  8. METOPROLOL TARTRATE [Concomitant]

REACTIONS (8)
  - ANOREXIA [None]
  - DISEASE PROGRESSION [None]
  - FATIGUE [None]
  - MYELODYSPLASTIC SYNDROME [None]
  - NAUSEA [None]
  - NECK PAIN [None]
  - SOMNOLENCE [None]
  - VOMITING [None]
